FAERS Safety Report 8608100-7 (Version None)
Quarter: 2012Q3

REPORT INFORMATION
  Report Type: 
  Country: None (occurrence: None)
  Receive Date: 20120821
  Receipt Date: 20120817
  Transmission Date: 20120928
  Serious: Yes (Death, Hospitalization, Other)
  Sender: FDA-Public Use
  Company Number: US-ASTRAZENECA-2011SE41545

PATIENT
  Age: 61 Year
  Sex: Female

DRUGS (89)
  1. PLAVIX [Concomitant]
     Dates: start: 20020102
  2. CARISOPRODOL [Concomitant]
     Dates: start: 20030620
  3. EUISTA [Concomitant]
     Indication: MENOPAUSE
  4. PRAUASTATIN SODIUM [Concomitant]
  5. TEMAZEPAM [Concomitant]
  6. NEXIUM [Suspect]
     Indication: GASTROOESOPHAGEAL REFLUX DISEASE
     Route: 048
  7. NEXIUM [Suspect]
     Route: 048
     Dates: start: 20030522
  8. LUSPIRONE HCL [Concomitant]
  9. GLIMEPIRIDE [Concomitant]
  10. AMBIEN [Concomitant]
     Indication: SLEEP DISORDER
  11. ENALAPRIL MALEATE [Concomitant]
  12. SPIRONOLACTON/ALDACTONE [Concomitant]
     Dates: start: 20021220
  13. COZZAAR [Concomitant]
  14. ALTACE [Concomitant]
  15. LEVAQUIN [Concomitant]
     Dates: start: 20030606
  16. AVANDIA [Concomitant]
     Dates: start: 20030620
  17. ZAROXOLYN [Concomitant]
     Dosage: 5 MG PRN
     Dates: start: 20070119
  18. ATORVASTATIN [Concomitant]
     Dates: start: 20020102
  19. NEXIUM [Suspect]
     Indication: ABDOMINAL PAIN UPPER
     Route: 048
  20. NEXIUM [Suspect]
     Route: 048
     Dates: start: 20030501, end: 20090401
  21. HYZAAR [Concomitant]
     Dosage: 50-12.5MG
     Dates: start: 20030423
  22. POTASSIUM CL [Concomitant]
  23. ISOSORBIDE MN/MONOKET [Concomitant]
     Route: 048
     Dates: start: 19961113
  24. SPIRIUA [Concomitant]
     Dosage: 18 MCG
  25. FUROSEMIDE [Concomitant]
  26. DIOUAN [Concomitant]
  27. SPIRONOLACTON/ALDACTONE [Concomitant]
     Dates: start: 20030423
  28. PROMETHAZINE [Concomitant]
  29. ASPIRIN/ASA/BUFFERED ASPIRIN [Concomitant]
     Dates: start: 20070119
  30. UNICEF [Concomitant]
     Dosage: 1 BID
     Route: 048
  31. LOPRESSOR [Concomitant]
     Route: 048
     Dates: start: 19961113
  32. KAY CIEL DURA-TABS [Concomitant]
     Dates: start: 20020102
  33. NEXIUM [Suspect]
     Route: 048
     Dates: start: 20021220
  34. NEXIUM [Suspect]
     Route: 048
     Dates: start: 20030501, end: 20090401
  35. NEXIUM [Suspect]
     Route: 048
     Dates: start: 20060104
  36. PLAVIX [Concomitant]
     Dates: start: 20020102
  37. FLUTICASONE PROPIONATE [Concomitant]
     Dosage: 50 MCG
  38. AZITHORMYCIN [Concomitant]
  39. WARFARIN SODIUM [Concomitant]
  40. CORG [Concomitant]
  41. CELEBREX [Concomitant]
     Dates: start: 20030618
  42. AVAPRO [Concomitant]
     Dates: start: 20110112
  43. COLCHICINE [Concomitant]
     Dosage: 0.6 MG PRN
     Dates: start: 20060104
  44. DEMEDEX [Concomitant]
     Dosage: 2 PO Q AM
     Dates: start: 20060104
  45. NEURONTIN [Concomitant]
     Dates: start: 20060104
  46. BUMEX [Concomitant]
     Dosage: EVERY DAY
     Dates: start: 19961113
  47. NEXIUM [Suspect]
     Route: 048
     Dates: start: 20060104
  48. HYZAAR [Concomitant]
     Dosage: 50 / 12.5 MG QD
     Dates: start: 20060104
  49. XANAX [Concomitant]
  50. RAZADYNE [Concomitant]
     Indication: MEMORY IMPAIRMENT
  51. NITROGLYCERIN [Concomitant]
     Indication: CARDIAC DISORDER
     Dates: start: 20030520
  52. NITROGLYCERIN [Concomitant]
     Dosage: 0.4 MG PRN
     Dates: start: 20070119
  53. PREDNISONE [Concomitant]
  54. AMIODARONE HCL [Concomitant]
  55. ZAROXOLYN [Concomitant]
     Dates: start: 20030424
  56. NEXIUM [Suspect]
     Route: 048
     Dates: start: 20021220
  57. XANAX [Concomitant]
     Dosage: 5MG 1/2 TAB QPM
     Route: 048
     Dates: start: 20060104
  58. RAZADYNE [Concomitant]
     Dates: start: 20060104
  59. LYRICA [Concomitant]
  60. PLAVIX [Concomitant]
     Indication: CARDIAC DISORDER
     Dosage: 1 PO Q DAY
     Route: 048
  61. PLAVIX [Concomitant]
     Indication: APOLIPOPROTEIN ABNORMAL
     Dosage: 1 PO Q DAY
     Route: 048
  62. ASPIRIN/ASA/BUFFERED ASPIRIN [Concomitant]
     Dates: start: 20060104
  63. ZOCOR [Concomitant]
     Dates: start: 20021220
  64. TOPROL-XL [Concomitant]
     Dates: start: 20060104
  65. CENTRUM VITAMIN [Concomitant]
     Dates: start: 20070119
  66. EVISSA [Concomitant]
  67. LUNESTA [Concomitant]
     Dates: start: 20021220
  68. NEXIUM [Suspect]
     Route: 048
     Dates: start: 20030522
  69. RANITIDINE [Concomitant]
     Dates: start: 20090401, end: 20110901
  70. CEFPROZIL [Concomitant]
  71. CEFADROXIL [Concomitant]
  72. AMITRIPTYLINE HCL [Concomitant]
  73. HYDROCOONE/APAP [Concomitant]
     Indication: PAIN
     Dosage: 7.5/750
  74. ASPIRIN/ASA/BUFFERED ASPIRIN [Concomitant]
     Route: 048
     Dates: start: 19961113
  75. ZAROXOLYN [Concomitant]
     Dates: start: 20060104
  76. CARDIZEM CD [Concomitant]
     Dates: start: 19961113
  77. XANAX [Concomitant]
     Dates: start: 20030620
  78. XANAX [Concomitant]
     Dosage: 0.5 MG 1/2 PRN
     Dates: start: 20070119
  79. ALLOPREERINOL [Concomitant]
     Indication: GOUT
  80. LOOASTATIN [Concomitant]
  81. CARISOPRODOL [Concomitant]
  82. ISOSORBIDE MN/MONOKET [Concomitant]
  83. CLINDAMYCIN HCL [Concomitant]
  84. ALLEGRA [Concomitant]
     Dates: start: 20110112
  85. COREG [Concomitant]
     Dates: start: 20110112
  86. TORSEMIDE [Concomitant]
     Dates: start: 20070119
  87. ZOCOR [Concomitant]
     Route: 048
     Dates: start: 19961113
  88. ZAROXOLYN [Concomitant]
  89. ZINAXIN [Concomitant]
     Dates: start: 20021220

REACTIONS (13)
  - ISCHAEMIC CARDIOMYOPATHY [None]
  - TYPE 2 DIABETES MELLITUS [None]
  - FRACTURE [None]
  - RENAL FAILURE CHRONIC [None]
  - TYPE 1 DIABETES MELLITUS [None]
  - UPPER LIMB FRACTURE [None]
  - CORONARY ARTERY DISEASE [None]
  - ARTERIOSCLEROSIS CORONARY ARTERY [None]
  - RIB FRACTURE [None]
  - SUBENDOCARDIAL ISCHAEMIA [None]
  - OSTEOPOROSIS [None]
  - CARDIAC FAILURE CONGESTIVE [None]
  - LOWER LIMB FRACTURE [None]
